FAERS Safety Report 15142537 (Version 1)
Quarter: 2018Q3

REPORT INFORMATION
  Report Type: Spontaneous
  Country: US (occurrence: US)
  Receive Date: 20180713
  Receipt Date: 20180713
  Transmission Date: 20181010
  Serious: No
  Sender: FDA-Public Use
  Company Number: US-ASTELLAS-2017US056091

PATIENT
  Sex: Female

DRUGS (3)
  1. MYRBETRIQ [Suspect]
     Active Substance: MIRABEGRON
     Dosage: 75 MG ONCE DAILY
  2. MYRBETRIQ [Suspect]
     Active Substance: MIRABEGRON
     Indication: PRODUCT USED FOR UNKNOWN INDICATION
     Route: 048
     Dates: start: 20170426
  3. MYRBETRIQ [Suspect]
     Active Substance: MIRABEGRON
     Dosage: 2 TABLET OF 25 MG, ONCE DAILY
     Route: 048

REACTIONS (1)
  - Prescribed overdose [Unknown]
